FAERS Safety Report 5396849-1 (Version None)
Quarter: 2007Q3

REPORT INFORMATION
  Report Type: 
  Country: None (occurrence: None)
  Receive Date: 20070725
  Receipt Date: 20070724
  Transmission Date: 20080115
  Serious: Yes (Hospitalization)
  Sender: FDA-Public Use
  Company Number: GB-BRISTOL-MYERS SQUIBB COMPANY-13837398

PATIENT
  Age: 69 Year
  Sex: Female

DRUGS (4)
  1. ASPIRIN [Suspect]
     Route: 048
  2. WARFARIN SODIUM [Suspect]
     Indication: AORTIC VALVE REPLACEMENT
     Route: 048
  3. WARFARIN SODIUM [Suspect]
     Indication: ANTIPLATELET THERAPY
     Route: 048
  4. CLOPIDOGREL BISULFATE [Suspect]
     Route: 048

REACTIONS (5)
  - ANGINA PECTORIS [None]
  - ARTERIAL STENOSIS [None]
  - ATRIAL FIBRILLATION [None]
  - ELECTROCARDIOGRAM ST SEGMENT DEPRESSION [None]
  - HAEMATOMA [None]
